FAERS Safety Report 4377293-2 (Version None)
Quarter: 2004Q2

REPORT INFORMATION
  Report Type: 
  Country: None (occurrence: None)
  Receive Date: 20040609
  Receipt Date: 20040305
  Transmission Date: 20050107
  Serious: No
  Sender: FDA-Public Use
  Company Number: 2004202599US

PATIENT
  Age: 77 Year
  Sex: Female

DRUGS (4)
  1. BEXTRA [Suspect]
     Indication: TENDONITIS
     Dosage: 20 MG, QD,
     Dates: start: 20040304
  2. PREMARIN [Concomitant]
  3. ANTIHYPERTENSIVES [Concomitant]
  4. ZOLOFT [Concomitant]

REACTIONS (1)
  - CHROMATURIA [None]
